FAERS Safety Report 16838592 (Version 1)
Quarter: 2019Q3

REPORT INFORMATION
  Report Type: Spontaneous
  Country: US (occurrence: US)
  Receive Date: 20190731
  Receipt Date: 20190731
  Transmission Date: 20191005
  Serious: No
  Sender: FDA-Public Use
  Company Number: None

PATIENT

DRUGS (3)
  1. FIRVANQ [Suspect]
     Active Substance: VANCOMYCIN HYDROCHLORIDE
  2. FIRVANQ [Suspect]
     Active Substance: VANCOMYCIN HYDROCHLORIDE
  3. DILUENT (WATER) [Suspect]
     Active Substance: WATER

REACTIONS (4)
  - Product dose omission [None]
  - Product dispensing error [None]
  - Drug monitoring procedure not performed [None]
  - Product preparation error [None]
